FAERS Safety Report 16582542 (Version 2)
Quarter: 2019Q3

REPORT INFORMATION
  Report Type: Spontaneous
  Country: IT (occurrence: IT)
  Receive Date: 20190717
  Receipt Date: 20190802
  Transmission Date: 20191004
  Serious: Yes (Life-Threatening, Hospitalization, Other)
  Sender: FDA-Public Use
  Company Number: IT-LUPIN PHARMACEUTICALS INC.-2019-04424

PATIENT
  Age: 32 Year
  Sex: Male
  Weight: 107 kg

DRUGS (7)
  1. STANOZOLOL [Suspect]
     Active Substance: STANOZOLOL
     Indication: PRODUCT USED FOR UNKNOWN INDICATION
     Dosage: 2 MILLIGRAM/KILOGRAM
     Route: 042
  2. TESTOSTERONE. [Suspect]
     Active Substance: TESTOSTERONE
     Indication: PRODUCT USED FOR UNKNOWN INDICATION
     Dosage: 500 MILLIGRAM, QD, FOR TWO MONTHS AT A DOSE OF 500 MG IM PER WEEK
     Route: 030
     Dates: start: 201605, end: 201606
  3. MESTEROLONE [Suspect]
     Active Substance: MESTEROLONE
     Indication: LIBIDO DECREASED
     Dosage: UNK, FOR ABOUT TWO YEARS
     Route: 065
     Dates: start: 2015, end: 2016
  4. IBUPROFEN. [Suspect]
     Active Substance: IBUPROFEN
     Indication: BACK PAIN
     Dosage: 600 MILLIGRAM, QD
     Route: 065
     Dates: start: 2014, end: 2015
  5. IBUPROFEN. [Suspect]
     Active Substance: IBUPROFEN
     Indication: PAIN IN EXTREMITY
  6. ENANTONE LP [Suspect]
     Active Substance: LEUPROLIDE ACETATE
     Indication: PRODUCT USED FOR UNKNOWN INDICATION
     Dosage: 500 MILLIGRAM, QD
     Route: 048
  7. CREATINE [Suspect]
     Active Substance: CREATINE
     Indication: PRODUCT USED FOR UNKNOWN INDICATION
     Dosage: UNK, 7 DAYS PER MONTH
     Route: 065

REACTIONS (14)
  - Polyuria [Recovering/Resolving]
  - Glomerulonephritis [Recovering/Resolving]
  - Hypokinesia [Recovered/Resolved]
  - Drug abuse [Recovering/Resolving]
  - Anaemia [Unknown]
  - Hypertension [Recovering/Resolving]
  - Hepatic steatosis [Unknown]
  - Azoospermia [Unknown]
  - Nephropathy toxic [Recovering/Resolving]
  - Chronic kidney disease [Recovering/Resolving]
  - Nephrotic syndrome [Recovering/Resolving]
  - Left ventricular hypertrophy [Unknown]
  - Focal segmental glomerulosclerosis [Recovering/Resolving]
  - End stage renal disease [Recovering/Resolving]

NARRATIVE: CASE EVENT DATE: 201607
